FAERS Safety Report 10809737 (Version 1)
Quarter: 2015Q1

REPORT INFORMATION
  Report Type: Spontaneous
  Country: US (occurrence: None)
  Receive Date: 20150213
  Receipt Date: 20150213
  Transmission Date: 20150721
  Serious: Yes (Disabling, Other)
  Sender: FDA-Public Use
  Company Number: None

PATIENT
  Age: 60 Year
  Sex: Female
  Weight: 77.11 kg

DRUGS (7)
  1. VITAMIN D + CALCIUM [Concomitant]
  2. AMBIEN [Concomitant]
     Active Substance: ZOLPIDEM TARTRATE
  3. CHLORHEXIDINE GLUCONATE ORAL RINSE 0.12 % [Suspect]
     Active Substance: CHLORHEXIDINE GLUCONATE
     Indication: BONE GRAFT
     Dosage: 0.12%, 473ML, 2X/DAY, ORAL RINSE
     Dates: start: 20140724, end: 20140807
  4. CHLORHEXIDINE GLUCONATE ORAL RINSE 0.12 % [Suspect]
     Active Substance: CHLORHEXIDINE GLUCONATE
     Indication: POSTOPERATIVE CARE
     Dosage: 0.12%, 473ML, 2X/DAY, ORAL RINSE
     Dates: start: 20140724, end: 20140807
  5. KLONOPIN [Concomitant]
     Active Substance: CLONAZEPAM
  6. ROCKY MTN MOUTH RINSE [Concomitant]
  7. VITAMIN [Concomitant]
     Active Substance: VITAMINS

REACTIONS (2)
  - Dysgeusia [None]
  - Ageusia [None]

NARRATIVE: CASE EVENT DATE: 20150203
